FAERS Safety Report 7251871-5 (Version None)
Quarter: 2011Q1

REPORT INFORMATION
  Report Type: 
  Country: None (occurrence: None)
  Receive Date: 20110128
  Receipt Date: 20100118
  Transmission Date: 20110831
  Serious: No
  Sender: FDA-Public Use
  Company Number: US-ABBOTT-09P-163-0611160-00

PATIENT
  Sex: Female
  Weight: 62.198 kg

DRUGS (2)
  1. HUMIRA [Suspect]
     Indication: CROHN'S DISEASE
     Dosage: OTHER
     Dates: start: 20090831
  2. HUMIRA [Suspect]
     Dates: start: 20091102

REACTIONS (8)
  - DISTURBANCE IN ATTENTION [None]
  - RASH PUSTULAR [None]
  - NECK MASS [None]
  - CONFUSIONAL STATE [None]
  - PRURITUS [None]
  - FATIGUE [None]
  - LOCAL SWELLING [None]
  - DRUG INEFFECTIVE [None]
